FAERS Safety Report 8177519-3 (Version None)
Quarter: 2012Q1

REPORT INFORMATION
  Report Type: 
  Country: None (occurrence: None)
  Receive Date: 20120301
  Receipt Date: 20120222
  Transmission Date: 20120608
  Serious: Yes (Life-Threatening, Hospitalization, Other)
  Sender: FDA-Public Use
  Company Number: US-ACTELION-A-US2012-60071

PATIENT

DRUGS (15)
  1. MICRO-K [Concomitant]
  2. NEXIUM [Concomitant]
  3. FUROSEMIDE [Concomitant]
  4. FEOSOL [Concomitant]
  5. LORTAB [Concomitant]
  6. ALBUTEROL [Concomitant]
  7. MULTI-VITAMIN [Concomitant]
  8. REVIA [Concomitant]
  9. COUMADIN [Concomitant]
  10. LETAIRIS [Concomitant]
  11. EPOPROSTENOL SODIUM [Suspect]
     Indication: PULMONARY ARTERIAL HYPERTENSION
     Dosage: 25 NG/KG, PER MIN
     Route: 042
     Dates: start: 20100728
  12. ZAROXOLYN [Concomitant]
  13. SYNTHROID [Concomitant]
  14. VITAMIN B-12 [Concomitant]
  15. OXYGEN [Concomitant]

REACTIONS (7)
  - ARTHRALGIA [None]
  - CHILLS [None]
  - MYALGIA [None]
  - OXYGEN SATURATION DECREASED [None]
  - PNEUMONIA [None]
  - PYREXIA [None]
  - DYSPNOEA [None]
